FAERS Safety Report 7507420-7 (Version None)
Quarter: 2011Q2

REPORT INFORMATION
  Report Type: 
  Country: None (occurrence: None)
  Receive Date: 20110526
  Receipt Date: 20110517
  Transmission Date: 20111010
  Serious: Yes (Hospitalization, Other)
  Sender: FDA-Public Use
  Company Number: US-ELI_LILLY_AND_COMPANY-US201010002321

PATIENT
  Sex: Female
  Weight: 55.782 kg

DRUGS (2)
  1. FORTEO [Suspect]
     Indication: OSTEOPOROSIS
     Dosage: 20 UG, DAILY (1/D)
     Dates: start: 20100712
  2. FORTEO [Suspect]
     Dosage: 20 UG, DAILY (1/D)

REACTIONS (8)
  - WOUND CLOSURE [None]
  - MALAISE [None]
  - FALL [None]
  - BLOOD CALCIUM INCREASED [None]
  - HIP FRACTURE [None]
  - BALANCE DISORDER [None]
  - POSTURE ABNORMAL [None]
  - ILL-DEFINED DISORDER [None]
